FAERS Safety Report 21799413 (Version 2)
Quarter: 2023Q1

REPORT INFORMATION
  Report Type: Report from Study
  Country: US (occurrence: US)
  Receive Date: 20221230
  Receipt Date: 20230106
  Transmission Date: 20230418
  Serious: No
  Sender: FDA-Public Use
  Company Number: US-ABBVIE-4253808

PATIENT
  Age: 57 Year
  Sex: Male

DRUGS (1)
  1. IMBRUVICA [Suspect]
     Active Substance: IBRUTINIB
     Indication: Mantle cell lymphoma
     Route: 048
     Dates: start: 20221103

REACTIONS (5)
  - Cough [Not Recovered/Not Resolved]
  - Mental impairment [Unknown]
  - Scratch [Unknown]
  - Stomatitis [Unknown]
  - Impaired healing [Unknown]

NARRATIVE: CASE EVENT DATE: 20221122
